FAERS Safety Report 21146379 (Version 1)
Quarter: 2022Q3

REPORT INFORMATION
  Report Type: Spontaneous
  Country: US (occurrence: US)
  Receive Date: 20220729
  Receipt Date: 20220729
  Transmission Date: 20221027
  Serious: Yes (Hospitalization, Other)
  Sender: FDA-Public Use
  Company Number: US-MLMSERVICE-20220713-3670672-1

PATIENT
  Age: 12 Year
  Sex: Male

DRUGS (10)
  1. METRONIDAZOLE [Suspect]
     Active Substance: METRONIDAZOLE
     Indication: Cryptitis
     Dosage: UNK
     Route: 065
  2. METRONIDAZOLE [Suspect]
     Active Substance: METRONIDAZOLE
     Indication: Clostridium difficile infection
     Dosage: 5 MILLIGRAM/KILOGRAM EVERY 8 HOUR
     Route: 065
  3. VANCOMYCIN [Suspect]
     Active Substance: VANCOMYCIN
     Indication: Cryptitis
     Dosage: UNK
     Route: 065
  4. VANCOMYCIN [Suspect]
     Active Substance: VANCOMYCIN
     Indication: Clostridium difficile infection
     Dosage: 250 MILLIGRAM EVERY 6 HOUR
     Route: 065
  5. DOXYCYCLINE [Concomitant]
     Active Substance: DOXYCYCLINE
     Indication: Cryptitis
     Dosage: 2 MILLIGRAM/KILOGRAM EVERY 12 HOUR
     Route: 065
  6. DOXYCYCLINE [Concomitant]
     Active Substance: DOXYCYCLINE
     Indication: Clostridium difficile infection
  7. MESALAMINE [Concomitant]
     Active Substance: MESALAMINE
     Indication: Clostridium difficile infection
     Dosage: UNK
     Route: 065
  8. MESALAMINE [Concomitant]
     Active Substance: MESALAMINE
     Indication: Cryptitis
  9. AMOXICILLIN [Concomitant]
     Active Substance: AMOXICILLIN
     Indication: Clostridium difficile infection
     Dosage: 50 MILLIGRAM/KILOGRAM DIVIDED BY THREE
     Route: 065
  10. AMOXICILLIN [Concomitant]
     Active Substance: AMOXICILLIN
     Indication: Cryptitis

REACTIONS (2)
  - Neurotoxicity [Recovered/Resolved]
  - Clostridium difficile infection [Recovered/Resolved]
